FAERS Safety Report 16518300 (Version 1)
Quarter: 2019Q3

REPORT INFORMATION
  Report Type: Spontaneous
  Country: US (occurrence: US)
  Receive Date: 20190522
  Receipt Date: 20190522
  Transmission Date: 20191004
  Serious: Yes (Hospitalization, Disabling)
  Sender: FDA-Public Use
  Company Number: None

PATIENT
  Age: 80 Year
  Sex: Female
  Weight: 79.38 kg

DRUGS (11)
  1. DOXYCYCLINE HYCLATE. [Suspect]
     Active Substance: DOXYCYCLINE HYCLATE
     Indication: SINUSITIS
     Dosage: ?          QUANTITY:100 MG MILLIGRAM(S);?
     Route: 048
     Dates: start: 20190410, end: 20190417
  2. DOXYCYCLINE HYCLATE. [Suspect]
     Active Substance: DOXYCYCLINE HYCLATE
     Indication: LOWER RESPIRATORY TRACT INFECTION
     Dosage: ?          QUANTITY:100 MG MILLIGRAM(S);?
     Route: 048
     Dates: start: 20190410, end: 20190417
  3. METOPROLOL. [Concomitant]
     Active Substance: METOPROLOL
  4. VITAMIN B12 [Concomitant]
     Active Substance: CYANOCOBALAMIN
  5. VIT D [Concomitant]
     Active Substance: VITAMIN D NOS
  6. XARELTO [Concomitant]
     Active Substance: RIVAROXABAN
  7. METFORMIN [Concomitant]
     Active Substance: METFORMIN HYDROCHLORIDE
  8. LOVASTATIN. [Concomitant]
     Active Substance: LOVASTATIN
  9. ATHRO 7 [Concomitant]
  10. BIOTIN [Concomitant]
     Active Substance: BIOTIN
  11. MULTI VIT [Concomitant]
     Active Substance: VITAMINS

REACTIONS (7)
  - Dysphagia [None]
  - Muscle tightness [None]
  - Myocardial infarction [None]
  - Gastrooesophageal reflux disease [None]
  - Dyspnoea [None]
  - Facial pain [None]
  - Back pain [None]

NARRATIVE: CASE EVENT DATE: 20190417
